FAERS Safety Report 5216246-9 (Version None)
Quarter: 2007Q1

REPORT INFORMATION
  Report Type: 
  Country: None (occurrence: None)
  Receive Date: 20070123
  Receipt Date: 20061222
  Transmission Date: 20070707
  Serious: Yes (Other)
  Sender: FDA-Public Use
  Company Number: DE-BOEHRINGER INGELHEIM GMBH, GERMANY-2006-DE-06851DE

PATIENT
  Age: 77 Year
  Sex: Male

DRUGS (3)
  1. MICARDIS [Suspect]
     Indication: ESSENTIAL HYPERTENSION
     Dosage: 40-80 MG DAILY
     Dates: start: 20050608, end: 20051223
  2. CARVEDILOL [Suspect]
     Indication: ESSENTIAL HYPERTENSION
     Dates: start: 20051021, end: 20051223
  3. RAMIPRIL [Suspect]
     Indication: ESSENTIAL HYPERTENSION
     Dates: start: 20051206, end: 20051223

REACTIONS (10)
  - ALANINE AMINOTRANSFERASE INCREASED [None]
  - ANOREXIA [None]
  - ASPARTATE AMINOTRANSFERASE INCREASED [None]
  - BLOOD PRESSURE ABNORMAL [None]
  - DIARRHOEA [None]
  - GAMMA-GLUTAMYLTRANSFERASE INCREASED [None]
  - GASTRITIS EROSIVE [None]
  - NAUSEA [None]
  - RETCHING [None]
  - WEIGHT DECREASED [None]
